FAERS Safety Report 18454022 (Version 2)
Quarter: 2020Q4

REPORT INFORMATION
  Report Type: Spontaneous
  Country: LT (occurrence: LT)
  Receive Date: 20201102
  Receipt Date: 20201117
  Transmission Date: 20210114
  Serious: Yes (Other)
  Sender: FDA-Public Use
  Company Number: LT-ASTRAZENECA-2020SF42780

PATIENT
  Age: 59 Year
  Sex: Female
  Weight: 97 kg

DRUGS (10)
  1. ATORVASTATIN [Concomitant]
     Active Substance: ATORVASTATIN
     Dosage: 60 MG DAILY
  2. XIGDUO XR [Suspect]
     Active Substance: DAPAGLIFLOZIN PROPANEDIOL\METFORMIN HYDROCHLORIDE
     Indication: TYPE 2 DIABETES MELLITUS
     Route: 048
     Dates: start: 2019
  3. COSIMPRELIS [Concomitant]
     Dosage: 10/5 MG DAILY
  4. BRILIQUE [Suspect]
     Active Substance: TICAGRELOR
     Indication: MYOCARDIAL INFARCTION
     Route: 048
     Dates: start: 2017
  5. DIAPREL [Concomitant]
     Active Substance: GLICLAZIDE
     Dosage: 120 MG DAILY
  6. XIGDUO XR [Suspect]
     Active Substance: DAPAGLIFLOZIN PROPANEDIOL\METFORMIN HYDROCHLORIDE
     Indication: TYPE 2 DIABETES MELLITUS
     Dosage: 5/850 MG , TWO TIMES A DAY
     Route: 048
  7. METFORMIN [Concomitant]
     Active Substance: METFORMIN HYDROCHLORIDE
     Dosage: 1700 TWO TIMES A DAY
  8. ATORIS [Concomitant]
     Active Substance: ATORVASTATIN CALCIUM
     Dosage: 60 MG/DAILY
  9. GLICLAZIDE [Concomitant]
     Active Substance: GLICLAZIDE
     Dosage: 120MG DAILY
  10. ASPIRIN. [Concomitant]
     Active Substance: ASPIRIN
     Dosage: 100 MG DAILY

REACTIONS (3)
  - Tachycardia [Recovering/Resolving]
  - Off label use [Unknown]
  - Myocardial infarction [Unknown]

NARRATIVE: CASE EVENT DATE: 202008
